FAERS Safety Report 6344115-X (Version None)
Quarter: 2009Q3

REPORT INFORMATION
  Report Type: 
  Country: None (occurrence: None)
  Receive Date: 20090904
  Receipt Date: 20090904
  Transmission Date: 20100115
  Serious: Yes (Other)
  Sender: FDA-Public Use
  Company Number: None

PATIENT
  Sex: Female
  Weight: 39.4629 kg

DRUGS (1)
  1. CEPHALEXIN [Suspect]
     Indication: URINARY TRACT INFECTION
     Dosage: 1 CAPSULE FOUR TIMES DAY PO
     Route: 048
     Dates: start: 20090831, end: 20090902

REACTIONS (1)
  - DERMATITIS ALLERGIC [None]
